FAERS Safety Report 21548499 (Version 1)
Quarter: 2022Q4

REPORT INFORMATION
  Report Type: Spontaneous
  Country: US (occurrence: US)
  Receive Date: 20221103
  Receipt Date: 20221103
  Transmission Date: 20230113
  Serious: No
  Sender: FDA-Public Use
  Company Number: US-NORTHSTAR HEALTHCARE HOLDINGS-US-2021NSR000104

PATIENT
  Age: 84 Year
  Sex: Female

DRUGS (2)
  1. BACLOFEN [Suspect]
     Active Substance: BACLOFEN
     Indication: Muscle injury
     Dosage: 10 MG, TID, PRN
     Route: 048
     Dates: start: 20210924
  2. BACLOFEN [Suspect]
     Active Substance: BACLOFEN
     Indication: Muscle tightness
     Dosage: 10 MG, 1.5 TABLETS
     Route: 048
     Dates: start: 20210925

REACTIONS (3)
  - Memory impairment [Unknown]
  - Loss of personal independence in daily activities [Unknown]
  - Confusional state [Unknown]
